FAERS Safety Report 6977324-7 (Version None)
Quarter: 2010Q3

REPORT INFORMATION
  Report Type: 
  Country: None (occurrence: None)
  Receive Date: 20100910
  Receipt Date: 20100824
  Transmission Date: 20110219
  Serious: Yes (Other)
  Sender: FDA-Public Use
  Company Number: PHHY2010KW58349

PATIENT
  Age: 11 Year
  Sex: Male

DRUGS (1)
  1. MIACALCIN [Suspect]
     Dosage: 200 IU
     Route: 045

REACTIONS (13)
  - BONE GIANT CELL TUMOUR BENIGN [None]
  - BONE GRAFT REMOVAL [None]
  - DENTAL OPERATION [None]
  - EXOSTOSIS [None]
  - FACIAL ASYMMETRY [None]
  - HAEMORRHAGE [None]
  - JAW DISORDER [None]
  - ORAL DISORDER [None]
  - OSTEOLYSIS [None]
  - POST PROCEDURAL OEDEMA [None]
  - TOOTH DISORDER [None]
  - TOOTH EROSION [None]
  - TOOTH RESORPTION [None]
